FAERS Safety Report 20454852 (Version 3)
Quarter: 2022Q1

REPORT INFORMATION
  Report Type: Spontaneous
  Country: US (occurrence: US)
  Receive Date: 20220210
  Receipt Date: 20220315
  Transmission Date: 20220423
  Serious: Yes (Other)
  Sender: FDA-Public Use
  Company Number: US-drreddys-SPO/USA/22/0146694

PATIENT
  Age: 51 Year
  Sex: Female

DRUGS (4)
  1. FLUCONAZOLE [Suspect]
     Active Substance: FLUCONAZOLE
     Indication: Coccidioidomycosis
  2. FLUCONAZOLE [Suspect]
     Active Substance: FLUCONAZOLE
  3. PREDNISONE [Suspect]
     Active Substance: PREDNISONE
     Indication: Systemic lupus erythematosus
     Dosage: LOW DOSE
  4. HYDROXYCHLOROQUINE [Suspect]
     Active Substance: HYDROXYCHLOROQUINE
     Indication: Systemic lupus erythematosus

REACTIONS (3)
  - Infection reactivation [Recovered/Resolved]
  - Cutaneous coccidioidomycosis [Recovered/Resolved]
  - Electrocardiogram QT prolonged [Recovered/Resolved]
